FAERS Safety Report 6441888-2 (Version None)
Quarter: 2009Q4

REPORT INFORMATION
  Report Type: 
  Country: None (occurrence: None)
  Receive Date: 20091116
  Receipt Date: 20091112
  Transmission Date: 20100525
  Serious: Yes (Other)
  Sender: FDA-Public Use
  Company Number: CHPA2009US22009

PATIENT
  Age: 60 Year
  Sex: Female
  Weight: 52.154 kg

DRUGS (3)
  1. KERI ORIGINAL (NCH) [Suspect]
     Indication: DRY SKIN
     Dosage: UNK, UNK
     Route: 061
  2. KERI ORIGINAL (NCH) [Suspect]
     Indication: ORAL HERPES
  3. DIOVAN [Concomitant]
     Indication: BLOOD PRESSURE INCREASED
     Dosage: UNK

REACTIONS (4)
  - CEREBROVASCULAR ACCIDENT [None]
  - OFF LABEL USE [None]
  - ORAL HERPES [None]
  - THERAPEUTIC RESPONSE UNEXPECTED [None]
